FAERS Safety Report 6325227-3 (Version None)
Quarter: 2009Q3

REPORT INFORMATION
  Report Type: 
  Country: None (occurrence: None)
  Receive Date: 20090824
  Receipt Date: 20090819
  Transmission Date: 20100115
  Serious: Yes (Hospitalization)
  Sender: FDA-Public Use
  Company Number: PHHY2009JP33686

PATIENT
  Sex: Female
  Weight: 54 kg

DRUGS (1)
  1. DIOVAN [Suspect]
     Indication: SUICIDE ATTEMPT
     Dosage: 10 TABLETS OF 40 MG
     Route: 048
     Dates: start: 20090808, end: 20090809

REACTIONS (8)
  - BLOOD PRESSURE DECREASED [None]
  - DIZZINESS [None]
  - HEART RATE INCREASED [None]
  - INTENTIONAL OVERDOSE [None]
  - LOSS OF CONSCIOUSNESS [None]
  - SELF-MEDICATION [None]
  - SHOCK [None]
  - SUICIDE ATTEMPT [None]
